FAERS Safety Report 24262840 (Version 2)
Quarter: 2024Q3

REPORT INFORMATION
  Report Type: Spontaneous
  Country: FR (occurrence: FR)
  Receive Date: 20240829
  Receipt Date: 20240829
  Transmission Date: 20241016
  Serious: Yes (Life-Threatening, Hospitalization, Other)
  Sender: ACCORD
  Company Number: FR-Accord-440089

PATIENT
  Age: 2 Year
  Sex: Female
  Weight: 18 kg

DRUGS (9)
  1. BUSULFAN [Suspect]
     Active Substance: BUSULFAN
     Indication: Neuroblastoma
     Dosage: STRENGTH: 6 MG/ML, 17MG/ 4 TIMES A DAY
     Dates: start: 20240618, end: 20240622
  2. MELPHALAN [Suspect]
     Active Substance: MELPHALAN
     Indication: Product used for unknown indication
     Dates: start: 20240625
  3. ALKERAN [Suspect]
     Active Substance: MELPHALAN
     Indication: Neuroblastoma
     Dosage: 85 MG/ PAR CYCLE
     Dates: start: 20240624, end: 20240624
  4. DEFIBROTIDE [Concomitant]
     Active Substance: DEFIBROTIDE (BOVINE)
  5. URSODIOL [Concomitant]
     Active Substance: URSODIOL
  6. TOCOPHEROL [Concomitant]
     Active Substance: TOCOPHEROL
  7. ACETYLCYSTEINE [Concomitant]
     Active Substance: ACETYLCYSTEINE
  8. ALBUMIN HUMAN [Concomitant]
     Active Substance: ALBUMIN HUMAN
  9. URSODIOL [Concomitant]
     Active Substance: URSODIOL
     Indication: Venoocclusive disease
     Dosage: 1FP

REACTIONS (5)
  - Venoocclusive disease [Not Recovered/Not Resolved]
  - General physical condition abnormal [Recovering/Resolving]
  - Gastrointestinal haemorrhage [Unknown]
  - Rectal haemorrhage [Unknown]
  - Off label use [Unknown]

NARRATIVE: CASE EVENT DATE: 20240715
